FAERS Safety Report 9138076 (Version 1)
Quarter: 2013Q1

REPORT INFORMATION
  Report Type: Spontaneous
  Country: US (occurrence: US)
  Receive Date: 20130304
  Receipt Date: 20130304
  Transmission Date: 20140127
  Serious: Yes (Other)
  Sender: FDA-Public Use
  Company Number: US-ASTRAZENECA-2013SE12480

PATIENT
  Age: 61 Year
  Sex: Male
  Weight: 88.5 kg

DRUGS (4)
  1. ATENOLOL [Suspect]
     Indication: CARDIAC DISORDER
     Route: 048
     Dates: end: 2012
  2. ATENOLOL [Suspect]
     Indication: CARDIAC DISORDER
     Route: 048
  3. VERAPAMIL [Suspect]
     Indication: CARDIAC DISORDER
     Route: 065
     Dates: end: 2012
  4. LIPITOR [Suspect]
     Indication: BLOOD CHOLESTEROL INCREASED
     Route: 048

REACTIONS (12)
  - Nervous system disorder [Unknown]
  - Blood prolactin increased [Recovered/Resolved]
  - Blood follicle stimulating hormone decreased [Recovered/Resolved]
  - Blood luteinising hormone decreased [Unknown]
  - Weight increased [Unknown]
  - Ventricular extrasystoles [Unknown]
  - Haemophilia [Unknown]
  - Ventricular tachycardia [Recovered/Resolved]
  - Blood testosterone decreased [Unknown]
  - Fatigue [Not Recovered/Not Resolved]
  - Insomnia [Not Recovered/Not Resolved]
  - Pulmonary oedema [Unknown]
